FAERS Safety Report 16210594 (Version 1)
Quarter: 2019Q2

REPORT INFORMATION
  Report Type: Spontaneous
  Country: AU (occurrence: AU)
  Receive Date: 20190418
  Receipt Date: 20190418
  Transmission Date: 20190711
  Serious: No
  Sender: FDA-Public Use
  Company Number: AU-LUPIN PHARMACEUTICALS INC.-2019-01629

PATIENT
  Sex: Female

DRUGS (2)
  1. DESVENLAFAXINE GH XR 50 MG TABLETS [Suspect]
     Active Substance: DESVENLAFAXINE
     Indication: PRODUCT USED FOR UNKNOWN INDICATION
     Dosage: UNK
     Route: 065
     Dates: start: 20180524
  2. DESVENLAFAXINE GH XR 50 MG TABLETS [Suspect]
     Active Substance: DESVENLAFAXINE
     Dosage: UNK
     Route: 065

REACTIONS (3)
  - Dizziness [Unknown]
  - Hyperacusis [Unknown]
  - Withdrawal syndrome [Unknown]
